FAERS Safety Report 16750369 (Version 3)
Quarter: 2019Q3

REPORT INFORMATION
  Report Type: Spontaneous
  Country: CA (occurrence: CA)
  Receive Date: 20190828
  Receipt Date: 20190916
  Transmission Date: 20191005
  Serious: Yes (Hospitalization, Other)
  Sender: FDA-Public Use
  Company Number: CA-GILEAD-2019-0425476

PATIENT
  Age: 65 Year
  Sex: Female

DRUGS (2)
  1. AMBRISENTAN [Suspect]
     Active Substance: AMBRISENTAN
     Indication: PULMONARY ARTERIAL HYPERTENSION
     Dosage: 10 MG, UNK
     Route: 065
     Dates: start: 20190819
  2. AMBRISENTAN [Suspect]
     Active Substance: AMBRISENTAN
     Dosage: 5 MG, UNK
     Route: 065
     Dates: start: 20190822

REACTIONS (8)
  - Sinus disorder [Unknown]
  - Sinus pain [Unknown]
  - Hospitalisation [Unknown]
  - Incorrect dose administered [Unknown]
  - Constipation [Unknown]
  - Dizziness [Unknown]
  - Lethargy [Unknown]
  - Cardiac flutter [Unknown]

NARRATIVE: CASE EVENT DATE: 201909
